FAERS Safety Report 6243644-7 (Version None)
Quarter: 2009Q2

REPORT INFORMATION
  Report Type: 
  Country: None (occurrence: None)
  Receive Date: 20090624
  Receipt Date: 20090616
  Transmission Date: 20091009
  Serious: Yes (Other)
  Sender: FDA-Public Use
  Company Number: US-CELGENEUS-163-21880-09061367

PATIENT
  Sex: Male

DRUGS (1)
  1. REVLIMID [Suspect]
     Indication: MULTIPLE MYELOMA
     Route: 048
     Dates: start: 20090526, end: 20090101

REACTIONS (5)
  - ASTHENIA [None]
  - FATIGUE [None]
  - PYREXIA [None]
  - RASH GENERALISED [None]
  - URTICARIA [None]
